FAERS Safety Report 7798615-6 (Version None)
Quarter: 2011Q4

REPORT INFORMATION
  Report Type: 
  Country: None (occurrence: None)
  Receive Date: 20111005
  Receipt Date: 20110928
  Transmission Date: 20120403
  Serious: Yes (Other)
  Sender: FDA-Public Use
  Company Number: US-AMGEN-USASP2011050412

PATIENT
  Age: 78 Year
  Sex: Female

DRUGS (1)
  1. PROLIA [Suspect]
     Indication: OSTEOPOROSIS POSTMENOPAUSAL
     Dosage: 60 MG, Q6MO
     Dates: start: 20110621

REACTIONS (15)
  - VERTIGO [None]
  - TINNITUS [None]
  - NERVOUSNESS [None]
  - HEADACHE [None]
  - ABDOMINAL PAIN [None]
  - MOBILITY DECREASED [None]
  - ACTIVITIES OF DAILY LIVING IMPAIRED [None]
  - EAR INFECTION [None]
  - ABDOMINAL DISCOMFORT [None]
  - EAR PAIN [None]
  - HYPERACUSIS [None]
  - HYPERSENSITIVITY [None]
  - DEAFNESS [None]
  - FEELING ABNORMAL [None]
  - DIZZINESS POSTURAL [None]
